FAERS Safety Report 5133216-X (Version None)
Quarter: 2006Q4

REPORT INFORMATION
  Report Type: 
  Country: None (occurrence: None)
  Receive Date: 20061018
  Receipt Date: 20061002
  Transmission Date: 20070319
  Serious: Yes (Hospitalization)
  Sender: FDA-Public Use
  Company Number: 225506

PATIENT
  Age: 57 Year
  Sex: Male

DRUGS (4)
  1. RAPTIVA [Suspect]
     Indication: PSORIASIS
     Dosage: 100 MG, 1 WEEK, SUBCUTANEOUS
     Route: 058
     Dates: start: 20060415
  2. METFORMIN HCL [Concomitant]
  3. LIPITOR [Concomitant]
  4. TERAZOSIN HCL [Concomitant]

REACTIONS (6)
  - CHEST PAIN [None]
  - LETHARGY [None]
  - MALAISE [None]
  - PNEUMONIA [None]
  - RESPIRATORY DISORDER [None]
  - SEPSIS [None]
